FAERS Safety Report 4819345-6 (Version None)
Quarter: 2005Q4

REPORT INFORMATION
  Report Type: 
  Country: None (occurrence: None)
  Receive Date: 20051103
  Receipt Date: 20040707
  Transmission Date: 20060501
  Serious: Yes (Hospitalization, Disabling, Other)
  Sender: FDA-Public Use
  Company Number: JP-BRISTOL-MYERS SQUIBB COMPANY-12635876

PATIENT
  Age: 32 Year
  Sex: Male

DRUGS (6)
  1. REYATAZ [Suspect]
     Indication: HIV INFECTION
     Route: 048
     Dates: start: 20040119, end: 20040526
  2. VIDEX EC [Suspect]
     Indication: HIV INFECTION
     Route: 048
     Dates: start: 20020408, end: 20040526
  3. ZERIT [Suspect]
  4. VIREAD [Suspect]
     Indication: HIV INFECTION
     Route: 048
     Dates: start: 20020722, end: 20040526
  5. KALETRA [Suspect]
     Indication: HIV INFECTION
     Route: 048
     Dates: start: 20020408, end: 20040119
  6. PARIET [Suspect]
     Indication: GASTRIC ULCER
     Route: 048
     Dates: start: 20040105, end: 20040305

REACTIONS (4)
  - FANCONI SYNDROME [None]
  - GASTRIC ULCER [None]
  - HEPATIC FAILURE [None]
  - OSTEOMALACIA [None]
